FAERS Safety Report 7724173-8 (Version None)
Quarter: 2011Q3

REPORT INFORMATION
  Report Type: 
  Country: None (occurrence: None)
  Receive Date: 20110901
  Receipt Date: 20110824
  Transmission Date: 20111222
  Serious: Yes (Hospitalization, Other)
  Sender: FDA-Public Use
  Company Number: JP-ROCHE-725157

PATIENT
  Sex: Female

DRUGS (42)
  1. TOCILIZUMAB [Suspect]
     Route: 041
     Dates: start: 20080717, end: 20080717
  2. TOCILIZUMAB [Suspect]
     Route: 041
     Dates: start: 20080814, end: 20080814
  3. TOCILIZUMAB [Suspect]
     Route: 041
     Dates: start: 20081106, end: 20081106
  4. TOCILIZUMAB [Suspect]
     Route: 041
     Dates: start: 20090519, end: 20090519
  5. PREDNISOLONE [Concomitant]
     Route: 048
     Dates: start: 20081009, end: 20081105
  6. PREDNISOLONE [Concomitant]
     Route: 048
     Dates: start: 20081204
  7. FLURBIPROFEN [Concomitant]
     Dosage: FORM: TAPE
     Route: 062
  8. CLARITHROMYCIN [Concomitant]
     Route: 048
     Dates: end: 20101012
  9. TOCILIZUMAB [Suspect]
     Route: 041
     Dates: start: 20100622, end: 20100622
  10. TOCILIZUMAB [Suspect]
     Route: 041
     Dates: start: 20101109, end: 20101109
  11. PREDNISOLONE [Concomitant]
     Route: 048
     Dates: start: 20080718, end: 20080813
  12. PREDNISOLONE [Concomitant]
     Route: 048
     Dates: start: 20080814, end: 20080910
  13. PREDNISOLONE [Concomitant]
     Route: 048
     Dates: start: 20080911, end: 20081008
  14. TOCILIZUMAB [Suspect]
     Route: 041
     Dates: start: 20080108, end: 20080108
  15. TOCILIZUMAB [Suspect]
     Route: 041
     Dates: start: 20080226, end: 20080226
  16. TOCILIZUMAB [Suspect]
     Route: 041
     Dates: start: 20100817, end: 20100817
  17. ONON [Concomitant]
     Route: 048
  18. ALLEGRA [Concomitant]
     Route: 048
     Dates: start: 20101109, end: 20101123
  19. PREDNISOLONE [Concomitant]
     Indication: RHEUMATOID ARTHRITIS
     Route: 048
  20. FERROUS CITRATE [Concomitant]
     Route: 048
     Dates: start: 20100817, end: 20101208
  21. TOCILIZUMAB [Suspect]
     Route: 041
     Dates: start: 20081204, end: 20081204
  22. TOCILIZUMAB [Suspect]
     Route: 041
     Dates: start: 20101012, end: 20101012
  23. PREDNISOLONE [Concomitant]
     Route: 048
     Dates: start: 20081106, end: 20081203
  24. PREDNISOLONE [Concomitant]
     Route: 048
     Dates: start: 20100622, end: 20100914
  25. VOLTAREN [Concomitant]
     Route: 048
     Dates: end: 20100914
  26. FOLIC ACID [Concomitant]
     Route: 048
     Dates: start: 20100622, end: 20101208
  27. RHEUMATREX [Concomitant]
     Route: 048
     Dates: start: 20100622, end: 20101208
  28. TOCILIZUMAB [Suspect]
     Route: 041
     Dates: start: 20080911, end: 20080911
  29. TOCILIZUMAB [Suspect]
     Route: 041
     Dates: start: 20081009, end: 20081009
  30. TOCILIZUMAB [Suspect]
     Route: 041
     Dates: start: 20090616, end: 20090616
  31. ALLEGRA [Concomitant]
     Dosage: ALLEGRA(FEXOFENADINE HYDROCHLORIDE)
     Route: 048
     Dates: start: 20101012, end: 20101019
  32. TOCILIZUMAB [Suspect]
     Indication: RHEUMATOID ARTHRITIS
     Route: 041
     Dates: start: 20080119, end: 20080619
  33. TOCILIZUMAB [Suspect]
     Route: 041
     Dates: start: 20080129, end: 20080129
  34. TOCILIZUMAB [Suspect]
     Route: 041
     Dates: start: 20090412, end: 20090412
  35. TOCILIZUMAB [Suspect]
     Route: 041
     Dates: start: 20100720, end: 20100720
  36. TOCILIZUMAB [Suspect]
     Route: 041
     Dates: start: 20100914, end: 20100914
  37. TOCILIZUMAB [Suspect]
     Route: 041
     Dates: start: 20101207, end: 20101207
  38. FAMOTIDINE [Concomitant]
     Route: 048
     Dates: end: 20101208
  39. CELECOXIB [Concomitant]
     Dosage: DRUG:CELECOX(CELECOXIB)
     Route: 048
     Dates: start: 20100914, end: 20101208
  40. TOCILIZUMAB [Suspect]
     Route: 041
     Dates: start: 20090326, end: 20090326
  41. PREDNISOLONE [Concomitant]
     Route: 048
     Dates: start: 20100915, end: 20101207
  42. CYTOTEC [Concomitant]
     Route: 048
     Dates: end: 20101208

REACTIONS (5)
  - WHEEZING [None]
  - C-REACTIVE PROTEIN INCREASED [None]
  - UPPER RESPIRATORY TRACT INFLAMMATION [None]
  - BRONCHITIS [None]
  - PERICARDIAL EFFUSION [None]
